FAERS Safety Report 19242072 (Version 1)
Quarter: 2021Q2

REPORT INFORMATION
  Report Type: Report from Study
  Country: US (occurrence: US)
  Receive Date: 20210510
  Receipt Date: 20210510
  Transmission Date: 20210717
  Serious: Yes (Hospitalization)
  Sender: FDA-Public Use
  Company Number: US-EXELIXIS-XL18421040039

PATIENT

DRUGS (1)
  1. XL184 [Suspect]
     Active Substance: CABOZANTINIB
     Indication: SQUAMOUS CELL CARCINOMA OF HEAD AND NECK
     Dosage: UNK

REACTIONS (7)
  - Pneumoperitoneum [Not Recovered/Not Resolved]
  - Pleural effusion [Unknown]
  - Pneumomediastinum [Not Recovered/Not Resolved]
  - Purulent discharge [Unknown]
  - Pneumothorax [Not Recovered/Not Resolved]
  - Atrial fibrillation [Unknown]
  - Streptococcal infection [Unknown]

NARRATIVE: CASE EVENT DATE: 20210428
